FAERS Safety Report 7959400-5 (Version None)
Quarter: 2011Q4

REPORT INFORMATION
  Report Type: 
  Country: None (occurrence: None)
  Receive Date: 20111206
  Receipt Date: 20111129
  Transmission Date: 20120403
  Serious: Yes (Other)
  Sender: FDA-Public Use
  Company Number: US-SANOFI-AVENTIS-2011SA078195

PATIENT
  Age: 67 Year
  Sex: Female

DRUGS (6)
  1. APIDRA [Suspect]
     Dosage: 20-24 UNITS
     Route: 058
     Dates: start: 20111101, end: 20111101
  2. SOLOSTAR [Suspect]
     Indication: TYPE 2 DIABETES MELLITUS
     Dates: start: 20110601
  3. APIDRA [Suspect]
     Indication: TYPE 2 DIABETES MELLITUS
     Dosage: 4-6 UNITS
     Route: 058
     Dates: start: 20110601
  4. SOLOSTAR [Suspect]
  5. LANTUS [Suspect]
     Indication: TYPE 2 DIABETES MELLITUS
     Route: 058
  6. ALL OTHER THERAPEUTIC PRODUCTS [Concomitant]

REACTIONS (2)
  - WRONG DRUG ADMINISTERED [None]
  - SHOULDER OPERATION [None]
